FAERS Safety Report 23096573 (Version 1)
Quarter: 2023Q4

REPORT INFORMATION
  Report Type: Spontaneous
  Country: US (occurrence: US)
  Receive Date: 20231023
  Receipt Date: 20231023
  Transmission Date: 20240110
  Serious: No
  Sender: FDA-Public Use
  Company Number: US-BAYER-2023A147771

PATIENT
  Age: 85 Year
  Sex: Female

DRUGS (4)
  1. ASTEPRO [Suspect]
     Active Substance: AZELASTINE HYDROCHLORIDE
     Indication: Allergic respiratory symptom
     Dosage: ONE SPRAY IN EACH NOSTRIL
     Dates: start: 20231014, end: 20231015
  2. ASTEPRO [Suspect]
     Active Substance: AZELASTINE HYDROCHLORIDE
     Indication: Nasopharyngitis
  3. ALGAE NOS [Concomitant]
  4. COLLAGEN [Concomitant]
     Active Substance: COLLAGEN

REACTIONS (3)
  - Cerebral disorder [Unknown]
  - Spinal disorder [Unknown]
  - Balance disorder [Not Recovered/Not Resolved]
